FAERS Safety Report 17160306 (Version 11)
Quarter: 2021Q1

REPORT INFORMATION
  Report Type: Spontaneous
  Country: US (occurrence: US)
  Receive Date: 20191216
  Receipt Date: 20210309
  Transmission Date: 20210419
  Serious: Yes (Hospitalization, Other)
  Sender: FDA-Public Use
  Company Number: US-PFIZER INC-2019539056

PATIENT
  Age: 72 Year
  Sex: Female
  Weight: 73.92 kg

DRUGS (7)
  1. IBRANCE [Suspect]
     Active Substance: PALBOCICLIB
     Dosage: 125 MG, UNK
  2. IBRANCE [Suspect]
     Active Substance: PALBOCICLIB
     Indication: BREAST CANCER METASTATIC
     Dosage: 125 MG, 1X/DAY
     Dates: start: 20191215
  3. FULVESTRANT. [Concomitant]
     Active Substance: FULVESTRANT
     Dosage: UNK
     Dates: start: 20191204
  4. IBRANCE [Suspect]
     Active Substance: PALBOCICLIB
     Dosage: 125 MG, 1X/DAY
     Dates: start: 20200108, end: 20200115
  5. IBRANCE [Suspect]
     Active Substance: PALBOCICLIB
     Dosage: 100 MG, CYCLIC, (1 TABLET BY MOUTH ONCE DAILY, THIS IS FIRST CYCLE OF THE 100 MG)
     Route: 048
  6. IBRANCE [Suspect]
     Active Substance: PALBOCICLIB
     Dosage: 75 MG
  7. IBRANCE [Suspect]
     Active Substance: PALBOCICLIB
     Dosage: 75 MG

REACTIONS (13)
  - Alopecia [Unknown]
  - Neutrophil count decreased [Unknown]
  - Blood disorder [Unknown]
  - Colon cancer [Unknown]
  - Neoplasm progression [Unknown]
  - Haemorrhoids [Unknown]
  - COVID-19 [Unknown]
  - Decreased immune responsiveness [Unknown]
  - Large intestinal haemorrhage [Not Recovered/Not Resolved]
  - Rash [Recovered/Resolved]
  - Pyrexia [Unknown]
  - Dermatitis allergic [Unknown]
  - Second primary malignancy [Unknown]
